FAERS Safety Report 21801641 (Version 1)
Quarter: 2022Q4

REPORT INFORMATION
  Report Type: Spontaneous
  Country: US (occurrence: None)
  Receive Date: 20221229
  Receipt Date: 20221229
  Transmission Date: 20230113
  Serious: Yes (Hospitalization)
  Sender: FDA-Public Use
  Company Number: None

PATIENT
  Sex: Female

DRUGS (1)
  1. CAPECITABINE [Suspect]
     Active Substance: CAPECITABINE
     Dosage: 1000 MG BID ORAL
     Route: 048

REACTIONS (4)
  - Gait inability [None]
  - Mental impairment [None]
  - Cardiac disorder [None]
  - Diabetes mellitus inadequate control [None]
